FAERS Safety Report 5913903-3 (Version None)
Quarter: 2008Q4

REPORT INFORMATION
  Report Type: 
  Country: None (occurrence: None)
  Receive Date: 20081009
  Receipt Date: 20080929
  Transmission Date: 20090506
  Serious: Yes (Life-Threatening, Other)
  Sender: FDA-Public Use
  Company Number: B0539235A

PATIENT
  Age: 40 Year
  Sex: Male

DRUGS (7)
  1. ZELITREX [Suspect]
     Indication: OPPORTUNISTIC INFECTION PROPHYLAXIS
     Route: 048
     Dates: start: 19990101
  2. PREZISTA [Suspect]
     Dosage: 600MG TWICE PER DAY
     Route: 048
     Dates: start: 20080319, end: 20080616
  3. NORVIR [Suspect]
     Dosage: 100MG TWICE PER DAY
     Route: 048
     Dates: start: 19990101
  4. TRUVADA [Suspect]
     Route: 048
     Dates: start: 20080301
  5. TRIFLUCAN [Suspect]
     Indication: FUNGAL INFECTION
     Route: 048
     Dates: start: 19990101
  6. PEGINTERFERON ALFA-2B [Suspect]
     Indication: HEPATITIS C POSITIVE
     Route: 042
     Dates: start: 20080201
  7. RIBAVIRIN [Suspect]
     Route: 065
     Dates: start: 19990101

REACTIONS (1)
  - ANAEMIA [None]
